FAERS Safety Report 7660128-X (Version None)
Quarter: 2011Q3

REPORT INFORMATION
  Report Type: 
  Country: None (occurrence: None)
  Receive Date: 20110805
  Receipt Date: 20110803
  Transmission Date: 20111222
  Serious: Yes (Death)
  Sender: FDA-Public Use
  Company Number: GB-AMGEN-GBRCT2011024519

PATIENT
  Age: 38 Year
  Sex: Female

DRUGS (19)
  1. CINACALCET HYDROCHLORIDE [Suspect]
     Indication: HYPERPARATHYROIDISM SECONDARY
     Dates: start: 20070104, end: 20110505
  2. PLACEBO [Suspect]
     Indication: HYPERPARATHYROIDISM SECONDARY
     Dates: start: 20070104, end: 20110505
  3. ATENOLOL [Concomitant]
     Dosage: UNK UNK, QD
  4. RENAGEL [Concomitant]
     Dosage: 800 UNK, UNK
  5. ASCORBIC ACID [Concomitant]
     Dosage: UNK UNK, QD
  6. WARFARIN SODIUM [Concomitant]
     Dosage: UNK UNK, PRN
  7. OMEPRAZOLE [Concomitant]
     Dosage: 20 MG, BID
  8. LANSOPRAZOLE [Concomitant]
  9. VENOFER [Concomitant]
  10. GALFER [Concomitant]
     Dosage: UNK UNK, QD
  11. ARANESP [Concomitant]
     Dosage: 60 A?G, QWK
  12. DICLOFENAC SODIUM [Concomitant]
     Dosage: 25 MG, QD
  13. NORETHINDRONE [Concomitant]
     Dosage: UNK UNK, TID
  14. SENNA [Concomitant]
  15. VITAMIN B [Concomitant]
     Dosage: UNK UNK, QD
  16. MORPHINE [Concomitant]
     Dosage: 40 MG, TID
  17. ALFACALCIDOL [Concomitant]
     Dosage: 2 A?G, 3 TIMES/WK
  18. SODIUM BICARBONATE [Concomitant]
     Dosage: 500 MG, TID
  19. NIFEDIPINE [Concomitant]
     Dosage: 30 MG, UNK

REACTIONS (1)
  - DEATH [None]
